FAERS Safety Report 26100396 (Version 1)
Quarter: 2025Q4

REPORT INFORMATION
  Report Type: Spontaneous
  Country: US (occurrence: US)
  Receive Date: 20251128
  Receipt Date: 20251128
  Transmission Date: 20260118
  Serious: Yes (Other)
  Sender: ALKEM
  Company Number: US-ALKEM LABORATORIES LIMITED-US-ALKEM-2025-12819

PATIENT
  Sex: Female
  Weight: 12 kg

DRUGS (2)
  1. LIDOCAINE [Suspect]
     Active Substance: LIDOCAINE
     Indication: Bladder spasm
     Dosage: 1000 MILLIGRAM
     Route: 061
  2. EPINEPHRINE [Concomitant]
     Active Substance: EPINEPHRINE
     Indication: Drug toxicity prophylaxis
     Dosage: UNK
     Route: 065

REACTIONS (5)
  - Generalised tonic-clonic seizure [Recovered/Resolved]
  - Local anaesthetic systemic toxicity [Recovered/Resolved]
  - Overdose [Unknown]
  - Lethargy [Recovered/Resolved]
  - Confusional state [Recovered/Resolved]
